FAERS Safety Report 4851421-4 (Version None)
Quarter: 2005Q4

REPORT INFORMATION
  Report Type: 
  Country: None (occurrence: None)
  Receive Date: 20051208
  Receipt Date: 20051124
  Transmission Date: 20060501
  Serious: Yes (Hospitalization, Other)
  Sender: FDA-Public Use
  Company Number: HQWYE805103OCT05

PATIENT
  Age: 42 Year
  Sex: Female

DRUGS (11)
  1. RAPAMUNE [Suspect]
     Indication: PROPHYLAXIS AGAINST TRANSPLANT REJECTION
     Dosage: 7 MG 1X PER 1 DAY ORAL
     Route: 048
     Dates: start: 20050723, end: 20051014
  2. RAPAMUNE [Suspect]
     Indication: PROPHYLAXIS AGAINST TRANSPLANT REJECTION
     Dosage: 7 MG 1X PER 1 DAY ORAL
     Route: 048
     Dates: start: 20051017, end: 20051017
  3. NYSTATIN [Concomitant]
  4. SODIUM ACID PHOSPHATE (SODIUM PHOSPHATE MONOBASIC) [Concomitant]
  5. VITAMIN D [Concomitant]
  6. CALCIUM CARBONATE (CALCIUM CARBONATE) [Concomitant]
  7. PENTAMIDINE (PENTAMIDINE) [Concomitant]
  8. PREDNISONE [Concomitant]
  9. CELLCEPT [Concomitant]
  10. CELLCEPT [Concomitant]
  11. CELLCEPT [Concomitant]

REACTIONS (8)
  - DISEASE RECURRENCE [None]
  - DRUG INEFFECTIVE [None]
  - ESCHERICHIA URINARY TRACT INFECTION [None]
  - HAEMOGLOBIN DECREASED [None]
  - HERPES SIMPLEX [None]
  - KIDNEY TRANSPLANT REJECTION [None]
  - PLATELET COUNT DECREASED [None]
  - WHITE BLOOD CELL COUNT DECREASED [None]
